FAERS Safety Report 21107229 (Version 1)
Quarter: 2022Q3

REPORT INFORMATION
  Report Type: Spontaneous
  Country: US (occurrence: US)
  Receive Date: 20220720
  Receipt Date: 20220720
  Transmission Date: 20221026
  Serious: No
  Sender: FDA-Public Use
  Company Number: US-PFIZER INC-202200982779

PATIENT
  Age: 80 Year
  Sex: Female

DRUGS (2)
  1. DEMEROL [Suspect]
     Active Substance: MEPERIDINE HYDROCHLORIDE
     Dosage: UNK
  2. PENICILLIN [Suspect]
     Active Substance: PENICILLIN
     Dosage: UNK

REACTIONS (1)
  - Visual impairment [Unknown]
